FAERS Safety Report 24187210 (Version 1)
Quarter: 2024Q3

REPORT INFORMATION
  Report Type: Spontaneous
  Country: JP (occurrence: JP)
  Receive Date: 20240808
  Receipt Date: 20240808
  Transmission Date: 20241017
  Serious: Yes (Death, Other)
  Sender: ROCHE
  Company Number: JP-CHUGAI-2024026438

PATIENT
  Age: 7 Decade
  Sex: Female

DRUGS (1)
  1. PIASKY [Suspect]
     Active Substance: CROVALIMAB-AKKZ
     Indication: Paroxysmal nocturnal haemoglobinuria
     Dosage: 680 MILLIGRAM, ONCE/4WEEKS
     Route: 050
     Dates: start: 202401, end: 20240702

REACTIONS (3)
  - Subdural haematoma [Fatal]
  - Brain herniation [Fatal]
  - Fall [Unknown]

NARRATIVE: CASE EVENT DATE: 20240728
